FAERS Safety Report 23404714 (Version 1)
Quarter: 2024Q1

REPORT INFORMATION
  Report Type: Spontaneous
  Country: CN (occurrence: CN)
  Receive Date: 20240116
  Receipt Date: 20240116
  Transmission Date: 20240410
  Serious: Yes (Other)
  Sender: FDA-Public Use
  Company Number: None

PATIENT
  Age: 62 Year
  Sex: Female
  Weight: 74 kg

DRUGS (4)
  1. CYCLOPHOSPHAMIDE [Suspect]
     Active Substance: CYCLOPHOSPHAMIDE
     Indication: Breast cancer female
     Dosage: 0.9 G, ONE TIME IN ONE DAY, DILUTED WITH 0.9% SODIUM CHLORIDE 50 ML, DAY 1
     Route: 041
     Dates: start: 20231124, end: 20231124
  2. SODIUM CHLORIDE [Suspect]
     Active Substance: SODIUM CHLORIDE
     Indication: Vehicle solution use
     Dosage: 0.9% 50 ML, ONE TIME IN ONE DAY, USED TO DILUTE 0.9G OF CYCLOPHOSPHAMIDE, DAY 1
     Route: 041
     Dates: start: 20231124, end: 20231124
  3. DEXTROSE [Suspect]
     Active Substance: DEXTROSE\DEXTROSE MONOHYDRATE
     Indication: Vehicle solution use
     Dosage: 5% 750 ML, ONE TIME IN ONE DAY, USED TO DILUTE DOXORUBICIN HYDROCHLORIDE LIPOSOME 50 MG, DAY 1
     Route: 041
     Dates: start: 20231124, end: 20231124
  4. DOXORUBICIN HYDROCHLORIDE [Suspect]
     Active Substance: DOXORUBICIN HYDROCHLORIDE
     Indication: Breast cancer female
     Dosage: 50 MG, ONE TIME IN ONE DAY, DILUTED WITH 5% GLUCOSE 750 ML, DAY 1, SELF-PREPARED
     Route: 041
     Dates: start: 20231124, end: 20231124

REACTIONS (1)
  - Leukopenia [Unknown]

NARRATIVE: CASE EVENT DATE: 20231218
